FAERS Safety Report 6568912-0 (Version None)
Quarter: 2010Q1

REPORT INFORMATION
  Report Type: 
  Country: None (occurrence: None)
  Receive Date: 20100201
  Receipt Date: 20100201
  Transmission Date: 20100710
  Serious: Yes (Other)
  Sender: FDA-Public Use
  Company Number: None

PATIENT
  Sex: Female
  Weight: 90.7194 kg

DRUGS (4)
  1. ISOSORBIDE MONONITRATE [Suspect]
     Indication: ANGINA PECTORIS
     Dosage: 1/2 TABLET 3 DAY 1 TABLET 1 DAY
     Dates: start: 20090902
  2. ISOSORBIDE MONONITRATE [Suspect]
     Indication: CHEST PAIN
     Dosage: 1/2 TABLET 3 DAY 1 TABLET 1 DAY
     Dates: start: 20090902
  3. ISOSORBIDE MONONITRATE [Suspect]
     Indication: ANGINA PECTORIS
     Dosage: 1/2 TABLET 3 DAY 1 TABLET 1 DAY
     Dates: start: 20090906
  4. ISOSORBIDE MONONITRATE [Suspect]
     Indication: CHEST PAIN
     Dosage: 1/2 TABLET 3 DAY 1 TABLET 1 DAY
     Dates: start: 20090906

REACTIONS (2)
  - HEADACHE [None]
  - MIGRAINE [None]
